FAERS Safety Report 4771907-0 (Version None)
Quarter: 2005Q3

REPORT INFORMATION
  Report Type: 
  Country: None (occurrence: None)
  Receive Date: 20050916
  Receipt Date: 20050909
  Transmission Date: 20060218
  Serious: Yes (Hospitalization)
  Sender: FDA-Public Use
  Company Number: US-GLAXOSMITHKLINE-A0573925A

PATIENT
  Sex: Female

DRUGS (2)
  1. ARIXTRA [Suspect]
     Indication: ACUTE CORONARY SYNDROME
     Dosage: 7.5MG PER DAY
     Route: 058
  2. TINZAPARIN [Concomitant]

REACTIONS (3)
  - DRUG INEFFECTIVE [None]
  - PERIPHERAL COLDNESS [None]
  - THROMBOSIS [None]
